FAERS Safety Report 9912670 (Version 1)
Quarter: 2014Q1

REPORT INFORMATION
  Report Type: Spontaneous
  Country: US (occurrence: None)
  Receive Date: 20140218
  Receipt Date: 20140218
  Transmission Date: 20141002
  Serious: Yes (Other)
  Sender: FDA-Public Use
  Company Number: None

PATIENT
  Age: 53 Year
  Sex: Female
  Weight: 54.43 kg

DRUGS (5)
  1. OMNISCAN [Suspect]
     Indication: CENTRAL NERVOUS SYSTEM LESION
     Dosage: ONCE X 3
     Route: 042
     Dates: start: 20110516, end: 20111220
  2. DOXYCYCLINE [Concomitant]
  3. ACYCLOVIR [Concomitant]
  4. CEFTRIAXONE [Concomitant]
  5. GADOLINIUM [Suspect]

REACTIONS (4)
  - Paraesthesia [None]
  - Hypothyroidism [None]
  - Memory impairment [None]
  - Nuclear magnetic resonance imaging abnormal [None]
